FAERS Safety Report 13688601 (Version 2)
Quarter: 2017Q3

REPORT INFORMATION
  Report Type: Spontaneous
  Country: JP (occurrence: JP)
  Receive Date: 20170626
  Receipt Date: 20170724
  Transmission Date: 20171127
  Serious: Yes (Other)
  Sender: FDA-Public Use
  Company Number: JP-CELGENEUS-JPN-20170605233

PATIENT
  Age: 77 Year
  Sex: Male
  Weight: 59.4 kg

DRUGS (5)
  1. LENADEX [Suspect]
     Active Substance: DEXAMETHASONE ACETATE
     Indication: PLASMA CELL MYELOMA
     Dosage: 40 MILLIGRAM
     Route: 048
     Dates: start: 20170501, end: 201705
  2. REVLIMID [Suspect]
     Active Substance: LENALIDOMIDE
     Dosage: 15 MILLIGRAM
     Route: 048
     Dates: start: 20170612, end: 20170614
  3. LENADEX [Suspect]
     Active Substance: DEXAMETHASONE ACETATE
     Dosage: 20 MILLIGRAM
     Route: 048
     Dates: start: 20170612, end: 20170614
  4. MLN9708 [Suspect]
     Active Substance: IXAZOMIB
     Indication: PLASMA CELL MYELOMA
     Dosage: 4.0MG
     Route: 048
     Dates: start: 20170501
  5. REVLIMID [Suspect]
     Active Substance: LENALIDOMIDE
     Indication: PLASMA CELL MYELOMA
     Dosage: 25 MILLIGRAM
     Route: 048
     Dates: start: 20170501, end: 201705

REACTIONS (5)
  - Malignant neoplasm of unknown primary site [Not Recovered/Not Resolved]
  - Gastrointestinal tract adenoma [Unknown]
  - Gastrointestinal polyp [Unknown]
  - Lymphangioma [Unknown]
  - Enteritis [Unknown]

NARRATIVE: CASE EVENT DATE: 20170614
